FAERS Safety Report 18588508 (Version 2)
Quarter: 2020Q4

REPORT INFORMATION
  Report Type: Spontaneous
  Country: MX (occurrence: MX)
  Receive Date: 20201207
  Receipt Date: 20201214
  Transmission Date: 20210114
  Serious: Yes (Life-Threatening, Other)
  Sender: FDA-Public Use
  Company Number: MX-009507513-2012MEX002238

PATIENT
  Age: 51 Year
  Sex: Male
  Weight: 80 kg

DRUGS (2)
  1. ROCURONIUM BROMIDE. [Suspect]
     Active Substance: ROCURONIUM BROMIDE
     Indication: NEUROMUSCULAR BLOCKADE
     Dosage: 50 MG/KG
     Dates: start: 2020
  2. BRIDION [Suspect]
     Active Substance: SUGAMMADEX
     Indication: NEUROMUSCULAR BLOCKADE REVERSAL
     Dosage: 200 MG
     Dates: start: 2020

REACTIONS (11)
  - Metastases to lung [Unknown]
  - Metastases to pleura [Unknown]
  - Hypotension [Recovered/Resolved]
  - Tachycardia [Recovered/Resolved]
  - Cardiac arrest [Unknown]
  - Spinal cord compression [Unknown]
  - Electrocardiogram QT prolonged [Unknown]
  - Sinus tachycardia [Unknown]
  - Asthenia [Unknown]
  - Bradycardia [Unknown]
  - Ventricular arrhythmia [Unknown]

NARRATIVE: CASE EVENT DATE: 2020
